FAERS Safety Report 7319413-3 (Version None)
Quarter: 2011Q1

REPORT INFORMATION
  Report Type: 
  Country: None (occurrence: None)
  Receive Date: 20110228
  Receipt Date: 20100310
  Transmission Date: 20110831
  Serious: No
  Sender: FDA-Public Use
  Company Number: A0849521A

PATIENT
  Sex: Female

DRUGS (2)
  1. LAMICTAL [Suspect]
     Indication: BIPOLAR DISORDER
     Dosage: 25MG UNKNOWN
     Route: 048
  2. AMBIEN [Concomitant]

REACTIONS (5)
  - ERYTHEMA [None]
  - PRURITUS [None]
  - URTICARIA [None]
  - SKIN DISCOLOURATION [None]
  - PARAESTHESIA [None]
